FAERS Safety Report 11878230 (Version 2)
Quarter: 2016Q1

REPORT INFORMATION
  Report Type: Report from Study
  Country: HN (occurrence: HN)
  Receive Date: 20151230
  Receipt Date: 20160115
  Transmission Date: 20160526
  Serious: Yes (Death, Other)
  Sender: FDA-Public Use
  Company Number: PHHY2015HN170309

PATIENT
  Age: 54 Year
  Sex: Male
  Weight: 70 kg

DRUGS (1)
  1. TASIGNA [Suspect]
     Active Substance: NILOTINIB
     Indication: CHRONIC MYELOID LEUKAEMIA
     Dosage: 400 MG, BID
     Route: 048
     Dates: start: 20151125

REACTIONS (3)
  - Haemoglobin decreased [Unknown]
  - Death [Fatal]
  - White blood cell count increased [Unknown]

NARRATIVE: CASE EVENT DATE: 20151227
